FAERS Safety Report 8281842-1 (Version None)
Quarter: 2012Q2

REPORT INFORMATION
  Report Type: 
  Country: None (occurrence: None)
  Receive Date: 20120413
  Receipt Date: 20120410
  Transmission Date: 20120825
  Serious: Yes (Hospitalization)
  Sender: FDA-Public Use
  Company Number: PHHO2012FR005580

PATIENT
  Sex: Male
  Weight: 188 kg

DRUGS (3)
  1. NEORAL [Suspect]
     Indication: RENAL TRANSPLANT
     Dosage: 300 MG, QD
     Route: 002
     Dates: start: 20120214
  2. MYCOPHENOLATE MOFETIL (CELLCEPT) [Suspect]
     Indication: RENAL TRANSPLANT
     Dosage: 1 G, QD
     Route: 002
     Dates: start: 20120213
  3. PREDNISOLONE [Concomitant]
     Indication: RENAL TRANSPLANT
     Dosage: 10 MG, QD
     Route: 002
     Dates: start: 20120221, end: 20120404

REACTIONS (1)
  - FEBRILE NEUTROPENIA [None]
